FAERS Safety Report 5656340-1 (Version None)
Quarter: 2008Q1

REPORT INFORMATION
  Report Type: 
  Country: None (occurrence: None)
  Receive Date: 20080309
  Receipt Date: 20071128
  Transmission Date: 20080703
  Serious: No
  Sender: FDA-Public Use
  Company Number: US-BAYER-200713961BCC

PATIENT
  Age: 50 Year
  Sex: Male
  Weight: 68 kg

DRUGS (2)
  1. ALEVE [Suspect]
     Indication: MYALGIA
     Dosage: TOTAL DAILY DOSE: 220 MG  UNIT DOSE: 220 MG
     Route: 048
     Dates: start: 20071126, end: 20071126
  2. MULTI-VITAMIN [Concomitant]

REACTIONS (3)
  - ABDOMINAL PAIN [None]
  - FLATULENCE [None]
  - HYPERHIDROSIS [None]
